FAERS Safety Report 9556814 (Version 2)
Quarter: 2013Q4

REPORT INFORMATION
  Report Type: Report from Study
  Country: US (occurrence: US)
  Receive Date: 20130724
  Receipt Date: 20131001
  Transmission Date: 20140711
  Serious: Yes (Other)
  Sender: FDA-Public Use
  Company Number: PHEH2013US007717

PATIENT
  Age: 50 Year
  Sex: Female

DRUGS (7)
  1. GILENYA [Suspect]
     Indication: MULTIPLE SCLEROSIS
     Dosage: 0.5 MG, QD
     Route: 048
     Dates: start: 201303
  2. PHENERGAN [Concomitant]
     Dosage: 25 MG, UNK
  3. AMBIEN [Concomitant]
     Dosage: 10 MG, UNK
  4. PREMARIN [Concomitant]
     Dosage: 0.3 MG, UNK
  5. NEURONTIN [Concomitant]
     Dosage: 300 MG, UNK
  6. ASPIRIN [Concomitant]
     Dosage: 81 MG, UNK
  7. PROZAC [Concomitant]
     Dosage: 10 MG, UNK

REACTIONS (10)
  - Rib fracture [Unknown]
  - Fall [Unknown]
  - Reading disorder [Unknown]
  - Pyrexia [Unknown]
  - Visual impairment [Unknown]
  - Weight increased [Unknown]
  - Fatigue [Unknown]
  - Dizziness [Unknown]
  - Headache [Unknown]
  - Hepatic enzyme increased [Unknown]
